FAERS Safety Report 7663249-0 (Version None)
Quarter: 2011Q3

REPORT INFORMATION
  Report Type: 
  Country: None (occurrence: None)
  Receive Date: 20110805
  Receipt Date: 20100806
  Transmission Date: 20111222
  Serious: No
  Sender: FDA-Public Use
  Company Number: US-ABBOTT-10P-163-0663132-00

PATIENT
  Sex: Female
  Weight: 68.1 kg

DRUGS (4)
  1. ADVAIR DISKUS 100/50 [Concomitant]
     Indication: CHRONIC OBSTRUCTIVE PULMONARY DISEASE
  2. SPIRIVA [Concomitant]
     Indication: CHRONIC OBSTRUCTIVE PULMONARY DISEASE
  3. NIASPAN [Suspect]
     Indication: BLOOD CHOLESTEROL INCREASED
     Dates: start: 20100701
  4. ALLEGRA [Concomitant]
     Indication: HYPERSENSITIVITY

REACTIONS (2)
  - MYALGIA [None]
  - PERIPHERAL ARTERIAL OCCLUSIVE DISEASE [None]
